FAERS Safety Report 10208012 (Version 1)
Quarter: 2014Q2

REPORT INFORMATION
  Report Type: Spontaneous
  Country: US (occurrence: None)
  Receive Date: 20140527
  Receipt Date: 20140527
  Transmission Date: 20141212
  Serious: No
  Sender: FDA-Public Use
  Company Number: None

PATIENT
  Age: 44 Year
  Sex: Female

DRUGS (5)
  1. MESALAMINE [Suspect]
     Indication: COLITIS ULCERATIVE
     Dates: start: 20120104, end: 20120815
  2. ALPRAZOLAM [Concomitant]
  3. CITALOPRAM [Concomitant]
  4. OMEPRAZOLE [Concomitant]
  5. LEVSIN [Concomitant]

REACTIONS (3)
  - Aspartate aminotransferase increased [None]
  - Alanine aminotransferase increased [None]
  - Drug-induced liver injury [None]
